FAERS Safety Report 13541790 (Version 3)
Quarter: 2017Q3

REPORT INFORMATION
  Report Type: Report from Study
  Country: US (occurrence: US)
  Receive Date: 20170512
  Receipt Date: 20170707
  Transmission Date: 20171127
  Serious: Yes (Death, Hospitalization)
  Sender: FDA-Public Use
  Company Number: US-009507513-1705USA005311

PATIENT
  Age: 74 Year
  Sex: Male

DRUGS (1)
  1. KEYTRUDA [Suspect]
     Active Substance: PEMBROLIZUMAB
     Indication: PLEURAL MESOTHELIOMA
     Dosage: 200 MG, EVERY 21 DAYS
     Route: 042
     Dates: start: 20160915, end: 20170418

REACTIONS (3)
  - Product use in unapproved indication [Unknown]
  - Oncologic complication [Fatal]
  - Adverse event [Unknown]

NARRATIVE: CASE EVENT DATE: 20160915
